FAERS Safety Report 9354766 (Version 3)
Quarter: 2013Q3

REPORT INFORMATION
  Report Type: Report from Study
  Country: IT (occurrence: IT)
  Receive Date: 20130619
  Receipt Date: 20130926
  Transmission Date: 20140515
  Serious: Yes (Death)
  Sender: FDA-Public Use
  Company Number: IT-ROCHE-1237156

PATIENT
  Age: 71 Year
  Sex: Male

DRUGS (5)
  1. BEVACIZUMAB [Suspect]
     Indication: NON-SMALL CELL LUNG CANCER
     Route: 042
     Dates: start: 20130509, end: 20130509
  2. PREGABALIN [Suspect]
     Indication: PRODUCT USED FOR UNKNOWN INDICATION
     Dosage: DRUG: LYRICA
     Route: 048
     Dates: start: 20130315, end: 20130606
  3. PACLITAXEL [Concomitant]
     Route: 042
     Dates: start: 20130509, end: 20130509
  4. CARBOPLATINO [Concomitant]
     Dosage: AUC : 6/21 DAYS
     Route: 042
     Dates: start: 20130509, end: 20130509
  5. TACHIPIRINA [Concomitant]
     Route: 048
     Dates: start: 20130315, end: 20130606

REACTIONS (2)
  - Myocardial infarction [Fatal]
  - Cardiogenic shock [Fatal]
